FAERS Safety Report 22909967 (Version 2)
Quarter: 2023Q4

REPORT INFORMATION
  Report Type: Report from Study
  Country: CA (occurrence: CA)
  Receive Date: 20230906
  Receipt Date: 20231212
  Transmission Date: 20240110
  Serious: Yes (Hospitalization, Other)
  Sender: FDA-Public Use
  Company Number: CA-CELLTRION INC.-2023CA017424

PATIENT

DRUGS (1)
  1. BEVACIZUMAB [Suspect]
     Active Substance: BEVACIZUMAB
     Indication: Glioblastoma
     Dosage: 700 MILLIGRAM, 1 EVERY 2 WEEKS
     Route: 065

REACTIONS (4)
  - Mass [Unknown]
  - Rectal haemorrhage [Unknown]
  - Headache [Unknown]
  - Intentional product use issue [Unknown]
